FAERS Safety Report 13621822 (Version 3)
Quarter: 2017Q3

REPORT INFORMATION
  Report Type: Spontaneous
  Country: JP (occurrence: JP)
  Receive Date: 20170607
  Receipt Date: 20170706
  Transmission Date: 20171127
  Serious: Yes (Hospitalization)
  Sender: FDA-Public Use
  Company Number: JP-KYOWAKIRIN-2017BKK001434

PATIENT

DRUGS (9)
  1. PACLITAXEL. [Concomitant]
     Active Substance: PACLITAXEL
     Indication: BREAST CANCER RECURRENT
     Dosage: 60 MG,1 D
     Route: 065
     Dates: start: 20130603
  2. POTASSIUM GLUCONATE [Concomitant]
     Active Substance: POTASSIUM GLUCONATE
     Indication: HYPOKALAEMIA
     Dosage: 1 G, 1 D
     Route: 048
     Dates: start: 20130603
  3. FARESTON [Suspect]
     Active Substance: TOREMIFENE CITRATE
     Indication: BREAST CANCER RECURRENT
     Dosage: 120 MG, 1D
     Route: 048
     Dates: start: 20130703, end: 20170509
  4. CALFINA [Concomitant]
     Active Substance: ALFACALCIDOL
     Indication: OSTEOPOROSIS
     Dosage: 1 UG, 1 D
     Route: 048
     Dates: start: 20130603
  5. CALCIUM LACTATE HYDRATE [Concomitant]
     Active Substance: CALCIUM LACTATE
     Indication: HYPOCALCAEMIA
     Dosage: 1 G, 1 D
     Route: 048
     Dates: start: 20130603
  6. MEMARY [Concomitant]
     Active Substance: MEMANTINE HYDROCHLORIDE
     Indication: DEMENTIA
     Dosage: 20 MG, 1 D
     Route: 048
     Dates: start: 20130603
  7. MASHININGAN [Concomitant]
     Active Substance: HERBALS
     Indication: CONSTIPATION
     Dosage: 2.5 G/ DAY
     Route: 048
     Dates: start: 20130603
  8. CRESTOR [Concomitant]
     Active Substance: ROSUVASTATIN CALCIUM
     Indication: DYSLIPIDAEMIA
     Dosage: 2.5 MG, 1 D
     Route: 048
     Dates: start: 20130603
  9. HERCEPTIN [Concomitant]
     Active Substance: TRASTUZUMAB
     Indication: BREAST CANCER RECURRENT
     Dosage: 94 MG, 1 D
     Route: 065
     Dates: start: 20130603

REACTIONS (3)
  - Metrorrhagia [Recovered/Resolved]
  - Anaemia [Recovered/Resolved]
  - Endometrial hyperplasia [Not Recovered/Not Resolved]

NARRATIVE: CASE EVENT DATE: 20170504
